FAERS Safety Report 10053178 (Version 6)
Quarter: 2016Q2

REPORT INFORMATION
  Report Type: Report from Study
  Country: BG (occurrence: BG)
  Receive Date: 20140402
  Receipt Date: 20160608
  Transmission Date: 20160815
  Serious: Yes (Hospitalization)
  Sender: FDA-Public Use
  Company Number: BG-UCBSA-115758

PATIENT
  Age: 61 Year
  Sex: Female
  Weight: 105.5 kg

DRUGS (7)
  1. METHOTREXATE [Concomitant]
     Active Substance: METHOTREXATE
     Indication: RHEUMATOID ARTHRITIS
     Dosage: 15 MG, AS NEEDED (PRN)
     Route: 048
     Dates: start: 20120308, end: 201311
  2. METHYLPREDNISOLONE. [Concomitant]
     Active Substance: METHYLPREDNISOLONE
     Indication: RHEUMATOID ARTHRITIS
     Dosage: 4 MG, ONCE DAILY (QD)
     Route: 048
     Dates: start: 20070625
  3. ACIDUM FOLICUM [Concomitant]
     Active Substance: FOLIC ACID
     Indication: RHEUMATOID ARTHRITIS
     Dosage: .4 MG, ONCE DAILY (QD)
     Route: 048
     Dates: start: 20120308, end: 201311
  4. CERTOLIZUMAB PEGOL RA [Suspect]
     Active Substance: CERTOLIZUMAB PEGOL
     Dosage: 200 MG, EV 2 WEEKS(QOW)
     Route: 058
     Dates: start: 201212, end: 20140217
  5. CERTOLIZUMAB PEGOL RA [Suspect]
     Active Substance: CERTOLIZUMAB PEGOL
     Indication: RHEUMATOID ARTHRITIS
     Dosage: 400 MG, EV 2 WEEKS(QOW)
     Route: 058
     Dates: start: 20121109, end: 201212
  6. FRAXIPARIN [Concomitant]
     Active Substance: NADROPARIN CALCIUM
     Dosage: 0.6
  7. QUAMATEL [Concomitant]
     Active Substance: FAMOTIDINE

REACTIONS (1)
  - Thyroid cancer [Recovered/Resolved with Sequelae]

NARRATIVE: CASE EVENT DATE: 20131118
